FAERS Safety Report 12852328 (Version 2)
Quarter: 2017Q1

REPORT INFORMATION
  Report Type: Spontaneous
  Country: FR (occurrence: FR)
  Receive Date: 20161017
  Receipt Date: 20170123
  Transmission Date: 20170428
  Serious: Yes (Hospitalization, Other)
  Sender: FDA-Public Use
  Company Number: FR-CELGENEUS-FRA-2016082106

PATIENT
  Age: 78 Year
  Sex: Female
  Weight: 81 kg

DRUGS (19)
  1. MOPRAL [Concomitant]
     Active Substance: OMEPRAZOLE SODIUM
     Indication: GASTROINTESTINAL DISORDER THERAPY
     Dosage: 20 MILLIGRAM
     Route: 048
     Dates: start: 20160224
  2. DEXAMETHASONE ORAL [Suspect]
     Active Substance: DEXAMETHASONE
     Indication: PLASMA CELL MYELOMA
     Route: 048
     Dates: start: 20160224
  3. HEPARIN [Suspect]
     Active Substance: HEPARIN SODIUM
     Indication: PRODUCT USED FOR UNKNOWN INDICATION
     Route: 065
  4. FURADANTINE [Concomitant]
     Active Substance: NITROFURANTOIN
     Indication: CYSTITIS
     Dosage: 50 MILLIGRAM
     Route: 048
     Dates: start: 20160530
  5. ASPEGIC [Concomitant]
     Active Substance: ASPIRIN DL-LYSINE
     Indication: THROMBOSIS
     Dosage: 100 MILLIGRAM
     Route: 048
     Dates: start: 20160422
  6. DIFFU K [Concomitant]
     Active Substance: POTASSIUM CHLORIDE
     Indication: PROPHYLAXIS
     Dosage: 1200 MILLIGRAM
     Route: 048
     Dates: start: 20160224
  7. INNOHEP [Concomitant]
     Active Substance: TINZAPARIN SODIUM
     Indication: THROMBOSIS
     Dosage: .7 MILLILITER
     Route: 058
     Dates: start: 20160421
  8. REVLIMID [Suspect]
     Active Substance: LENALIDOMIDE
     Indication: PLASMA CELL MYELOMA
     Dosage: 25 MILLIGRAM
     Route: 048
     Dates: start: 20160224
  9. VALACICLOVIR [Concomitant]
     Active Substance: VALACYCLOVIR HYDROCHLORIDE
     Indication: ANTIVIRAL PROPHYLAXIS
     Dosage: 1000 MILLIGRAM
     Route: 048
     Dates: start: 20160224
  10. ORACILLINE [Concomitant]
     Active Substance: PENICILLIN V
     Indication: INFECTION PROPHYLAXIS
     Dosage: 2 IU (INTERNATIONAL UNIT)
     Route: 048
     Dates: start: 20160224
  11. CALCIDIA [Concomitant]
     Active Substance: CALCIUM POLYCARBOPHIL
     Indication: PROPHYLAXIS
     Dosage: 4.62 GRAM
     Route: 048
  12. DAFALGAN [Concomitant]
     Active Substance: ACETAMINOPHEN
     Indication: PAIN
     Dosage: 500 MILLIGRAM
     Route: 048
  13. LEVOTHYROX [Concomitant]
     Active Substance: LEVOTHYROXINE
     Dosage: 125 MICROGRAM
     Route: 048
     Dates: start: 20160822
  14. TAHOR [Concomitant]
     Active Substance: ATORVASTATIN CALCIUM
     Indication: DYSLIPIDAEMIA
     Dosage: 80 MILLIGRAM
     Route: 048
     Dates: start: 20160415
  15. INNOHEP [Concomitant]
     Active Substance: TINZAPARIN SODIUM
     Dosage: .6 MILLILITER
     Route: 058
     Dates: start: 20160612
  16. DEXAMETHASONE ORAL [Suspect]
     Active Substance: DEXAMETHASONE
     Route: 048
     Dates: start: 20160520
  17. LEDERFOLINE [Concomitant]
     Active Substance: LEUCOVORIN CALCIUM
     Indication: INFECTION PROPHYLAXIS
     Dosage: 10.7143 MILLIGRAM
     Route: 048
     Dates: start: 20160224
  18. LEVOTHYROX [Concomitant]
     Active Substance: LEVOTHYROXINE
     Indication: THYROIDECTOMY
     Dosage: 100 MICROGRAM
     Route: 048
  19. UN-ALFA [Concomitant]
     Active Substance: ALFACALCIDOL
     Indication: THYROIDECTOMY
     Route: 048

REACTIONS (2)
  - Cholestasis [Recovered/Resolved]
  - Haematuria [Recovered/Resolved]

NARRATIVE: CASE EVENT DATE: 20160606
